FAERS Safety Report 6350678-0 (Version None)
Quarter: 2009Q3

REPORT INFORMATION
  Report Type: 
  Country: None (occurrence: None)
  Receive Date: 20090911
  Receipt Date: 20090622
  Transmission Date: 20100115
  Serious: No
  Sender: FDA-Public Use
  Company Number: US-ABBOTT-07P-163-0365408-00

PATIENT
  Sex: Female
  Weight: 66.738 kg

DRUGS (3)
  1. HUMIRA [Suspect]
     Indication: RHEUMATOID ARTHRITIS
     Route: 058
     Dates: start: 20061201, end: 20070414
  2. HUMIRA [Suspect]
     Dosage: PEN
     Route: 058
     Dates: start: 20070414
  3. PREDNISONE [Concomitant]
     Indication: RHEUMATOID ARTHRITIS
     Route: 048
     Dates: start: 19970101

REACTIONS (6)
  - ACCIDENTAL NEEDLE STICK [None]
  - DRUG INEFFECTIVE [None]
  - FATIGUE [None]
  - INCORRECT DOSE ADMINISTERED [None]
  - INFLUENZA [None]
  - NASAL CONGESTION [None]
